FAERS Safety Report 7657712-6 (Version None)
Quarter: 2011Q3

REPORT INFORMATION
  Report Type: 
  Country: None (occurrence: None)
  Receive Date: 20110804
  Receipt Date: 20110727
  Transmission Date: 20111222
  Serious: Yes (Other)
  Sender: FDA-Public Use
  Company Number: US-RB-025493-11

PATIENT
  Age: 30 Year
  Sex: Male

DRUGS (1)
  1. SUBOXONE [Suspect]
     Indication: PRODUCT USED FOR UNKNOWN INDICATION
     Dosage: SUBLINGUAL FILM; DOSING INFORMATION UNKNOWN
     Route: 065

REACTIONS (9)
  - CONDITION AGGRAVATED [None]
  - LOSS OF CONSCIOUSNESS [None]
  - MEMORY IMPAIRMENT [None]
  - HYPERCALCAEMIA [None]
  - OFF LABEL USE [None]
  - FLUID RETENTION [None]
  - FEELING ABNORMAL [None]
  - DYSGEUSIA [None]
  - INFECTION [None]
